FAERS Safety Report 4893023-X (Version None)
Quarter: 2006Q1

REPORT INFORMATION
  Report Type: 
  Country: None (occurrence: None)
  Receive Date: 20060126
  Receipt Date: 20051007
  Transmission Date: 20060701
  Serious: Yes (Other)
  Sender: FDA-Public Use
  Company Number: US-AVENTIS-200517191US

PATIENT
  Sex: Male
  Weight: 95.45 kg

DRUGS (6)
  1. LANTUS [Suspect]
     Indication: DIABETES MELLITUS
     Dosage: DOSE UNIT: UNITS
     Dates: start: 20020101
  2. TOPROL-XL [Concomitant]
     Dosage: DOSE: UNK
  3. SERUMLIPIDREDUCING AGENTS [Concomitant]
     Dosage: DOSE: UNK
  4. ATENOLOL [Concomitant]
     Dosage: DOSE: UNK
  5. BENICAR                                 /USA/ [Concomitant]
  6. NOVOLIN R [Concomitant]
     Dosage: DOSE: UNKNOWN

REACTIONS (7)
  - DERMATITIS [None]
  - DRUG ERUPTION [None]
  - EPIDERMAL NECROSIS [None]
  - INSOMNIA [None]
  - RASH PRURITIC [None]
  - SKIN DISORDER [None]
  - WEIGHT INCREASED [None]
